FAERS Safety Report 12222932 (Version 1)
Quarter: 2016Q1

REPORT INFORMATION
  Report Type: Spontaneous
  Country: US (occurrence: US)
  Receive Date: 20160330
  Receipt Date: 20160330
  Transmission Date: 20160526
  Serious: No
  Sender: FDA-Public Use
  Company Number: US-PERRIGO-15US006946

PATIENT
  Sex: Male

DRUGS (1)
  1. ACETAMINOPHEN. [Suspect]
     Active Substance: ACETAMINOPHEN
     Indication: GENITAL BURNING SENSATION
     Dosage: 1300 MG, EVERY 8 HOURS
     Route: 048
     Dates: start: 20150701

REACTIONS (2)
  - Drug ineffective for unapproved indication [Unknown]
  - Therapeutic response unexpected [Recovered/Resolved]

NARRATIVE: CASE EVENT DATE: 20150701
